FAERS Safety Report 5895469-X (Version None)
Quarter: 2008Q3

REPORT INFORMATION
  Report Type: 
  Country: None (occurrence: None)
  Receive Date: 20080923
  Receipt Date: 20080923
  Transmission Date: 20090109
  Serious: Yes (Hospitalization)
  Sender: FDA-Public Use
  Company Number: None

PATIENT
  Sex: Female
  Weight: 83 kg

DRUGS (2)
  1. DOXORUBICIN HCL [Suspect]
     Indication: BREAST CANCER
     Dosage: 60 MG/M2= 103 MG EVERY 2 WEEKS IV
     Route: 042
     Dates: start: 20080915, end: 20080915
  2. CYCLOPHOSPHAMIDE [Suspect]
     Indication: BREAST CANCER
     Dosage: 600 MG/M2=1030 EVERY 2 WEEKS IV
     Route: 042
     Dates: start: 20080915, end: 20080915

REACTIONS (2)
  - CHOLELITHIASIS [None]
  - PANCREATITIS [None]
